FAERS Safety Report 6939603-9 (Version None)
Quarter: 2010Q3

REPORT INFORMATION
  Report Type: 
  Country: None (occurrence: None)
  Receive Date: 20100820
  Receipt Date: 20100805
  Transmission Date: 20110219
  Serious: No
  Sender: FDA-Public Use
  Company Number: TCI2010A03157

PATIENT
  Sex: Male

DRUGS (1)
  1. LANSOPRAZOLE [Suspect]
     Dosage: PER ORAL
     Route: 048

REACTIONS (2)
  - VISION BLURRED [None]
  - VISUAL IMPAIRMENT [None]
